FAERS Safety Report 9917109 (Version 2)
Quarter: 2014Q1

REPORT INFORMATION
  Report Type: Spontaneous
  Country: US (occurrence: US)
  Receive Date: 20140221
  Receipt Date: 20140221
  Transmission Date: 20141002
  Serious: Yes (Hospitalization)
  Sender: FDA-Public Use
  Company Number: US-JNJFOC-20140112352

PATIENT
  Sex: Female
  Weight: 58.06 kg

DRUGS (6)
  1. XARELTO [Suspect]
     Indication: PULMONARY EMBOLISM
     Route: 048
  2. NEXIUM [Concomitant]
     Dosage: BEFORE BREAKFAST
     Route: 065
  3. IMODIUM [Concomitant]
     Route: 065
  4. ATIVAN [Concomitant]
     Indication: NAUSEA
     Route: 065
  5. ZOFRAN [Concomitant]
     Indication: NAUSEA
     Route: 065
  6. COMPAZINE [Concomitant]
     Indication: NAUSEA
     Route: 065

REACTIONS (5)
  - Gastrointestinal haemorrhage [Recovered/Resolved]
  - Haemoglobin decreased [Unknown]
  - Haematocrit decreased [Unknown]
  - Chest pain [Unknown]
  - Dyspnoea [Unknown]
